FAERS Safety Report 8245354-3 (Version None)
Quarter: 2012Q1

REPORT INFORMATION
  Report Type: 
  Country: None (occurrence: None)
  Receive Date: 20120329
  Receipt Date: 20120321
  Transmission Date: 20120608
  Serious: Yes (Death, Hospitalization)
  Sender: FDA-Public Use
  Company Number: US-ELI_LILLY_AND_COMPANY-US201203006492

PATIENT
  Sex: Male

DRUGS (12)
  1. FLOMAX [Concomitant]
  2. TAMSULOSIN HCL [Concomitant]
  3. IMDUR [Concomitant]
  4. PROTONIX [Concomitant]
  5. ASPIRIN [Concomitant]
  6. FORTEO [Suspect]
     Indication: OSTEOPOROSIS
     Dosage: 20 UG, QD
     Dates: start: 20120209
  7. VICODIN [Concomitant]
     Indication: PAIN
     Dosage: UNK, PRN
  8. IRON [Concomitant]
     Dosage: UNK
  9. PLAVIX [Concomitant]
  10. ZOCOR [Concomitant]
     Dosage: UNK
  11. MIRTAZAPINE [Concomitant]
  12. WELLBUTRIN [Concomitant]

REACTIONS (10)
  - ARRHYTHMIA [None]
  - VERTEBROPLASTY [None]
  - DEATH [None]
  - PNEUMONIA [None]
  - VOMITING [None]
  - NAUSEA [None]
  - ABDOMINAL STRANGULATED HERNIA [None]
  - FRACTURE [None]
  - FALL [None]
  - ABASIA [None]
